FAERS Safety Report 9099829 (Version 2)
Quarter: 2013Q1

REPORT INFORMATION
  Report Type: Spontaneous
  Country: BD (occurrence: BD)
  Receive Date: 20130215
  Receipt Date: 20130219
  Transmission Date: 20140127
  Serious: Yes (Other)
  Sender: FDA-Public Use
  Company Number: PHHY2013BD013996

PATIENT
  Age: 85 Year
  Sex: Female

DRUGS (1)
  1. ACLASTA [Suspect]
     Indication: OSTEOPOROSIS
     Dosage: 5 MG/ 100 ML
     Route: 042
     Dates: start: 20110907

REACTIONS (5)
  - Cerebrovascular accident [Recovered/Resolved with Sequelae]
  - Gait disturbance [Unknown]
  - Balance disorder [Unknown]
  - Coordination abnormal [Unknown]
  - Fall [Unknown]
